FAERS Safety Report 15159766 (Version 3)
Quarter: 2018Q3

REPORT INFORMATION
  Report Type: Spontaneous
  Country: US (occurrence: US)
  Receive Date: 20180718
  Receipt Date: 20180913
  Transmission Date: 20181010
  Serious: No
  Sender: FDA-Public Use
  Company Number: US-GLAXOSMITHKLINE-US2018124922

PATIENT
  Sex: Female

DRUGS (2)
  1. ADVAIR DISKUS [Suspect]
     Active Substance: FLUTICASONE PROPIONATE\SALMETEROL XINAFOATE
     Indication: CHRONIC OBSTRUCTIVE PULMONARY DISEASE
  2. ADVAIR DISKUS [Suspect]
     Active Substance: FLUTICASONE PROPIONATE\SALMETEROL XINAFOATE
     Indication: BRONCHITIS
     Dosage: 1 PUFF(S), BID
     Route: 055

REACTIONS (8)
  - Increased upper airway secretion [Not Recovered/Not Resolved]
  - Therapeutic response unexpected [Unknown]
  - Cough [Not Recovered/Not Resolved]
  - Dysphonia [Not Recovered/Not Resolved]
  - Wrong technique in device usage process [Unknown]
  - Product quality issue [Unknown]
  - Ear infection [Recovered/Resolved]
  - Drug effect decreased [Not Recovered/Not Resolved]
